FAERS Safety Report 6545311-9 (Version None)
Quarter: 2010Q1

REPORT INFORMATION
  Report Type: 
  Country: None (occurrence: None)
  Receive Date: 20100121
  Receipt Date: 20100114
  Transmission Date: 20100710
  Serious: Yes (Hospitalization)
  Sender: FDA-Public Use
  Company Number: DE-AMGEN-UK358903

PATIENT
  Sex: Female
  Weight: 82 kg

DRUGS (16)
  1. VECTIBIX [Suspect]
     Indication: COLORECTAL CANCER
     Route: 065
  2. DIGOXIN [Concomitant]
     Route: 065
  3. CALCIUM [Concomitant]
     Route: 048
  4. MARCUMAR [Concomitant]
     Route: 065
  5. CONCOR [Concomitant]
     Route: 048
  6. L-THYROXIN [Concomitant]
     Route: 048
  7. MIRTAZAPINE [Concomitant]
     Route: 048
  8. NORVASC [Concomitant]
     Route: 048
  9. ROCALTROL [Concomitant]
     Route: 048
  10. AQUAPHOR [Concomitant]
     Route: 048
  11. PANTOPRAZOLE [Concomitant]
     Route: 048
  12. NOVALGIN [Concomitant]
  13. CALCIUM [Concomitant]
     Route: 048
  14. METOCLOPRAMIDE [Concomitant]
     Route: 048
  15. MAGNESIUM [Concomitant]
     Route: 048
  16. LATANOPROST [Concomitant]
     Route: 048

REACTIONS (12)
  - ACUTE PRERENAL FAILURE [None]
  - COLITIS [None]
  - DEHYDRATION [None]
  - DIARRHOEA [None]
  - ENTEROCOCCAL INFECTION [None]
  - ESCHERICHIA INFECTION [None]
  - HYPOCALCAEMIA [None]
  - KLEBSIELLA INFECTION [None]
  - OVERDOSE [None]
  - PARONYCHIA [None]
  - SKIN LESION [None]
  - URINARY TRACT INFECTION [None]
